FAERS Safety Report 12732020 (Version 1)
Quarter: 2016Q3

REPORT INFORMATION
  Report Type: Spontaneous
  Country: US (occurrence: US)
  Receive Date: 20160909
  Receipt Date: 20160909
  Transmission Date: 20161109
  Serious: Yes (Hospitalization)
  Sender: FDA-Public Use
  Company Number: None

PATIENT
  Age: 28 Year
  Sex: Female
  Weight: 67.5 kg

DRUGS (1)
  1. CUSHION COMPACT J. CAT BEAUTY [Suspect]
     Active Substance: TITANIUM DIOXIDE
     Indication: PRODUCT USED FOR UNKNOWN INDICATION
     Route: 061
     Dates: start: 20160904, end: 20160905

REACTIONS (3)
  - Rash [None]
  - Skin burning sensation [None]
  - Product label confusion [None]

NARRATIVE: CASE EVENT DATE: 20160905
